FAERS Safety Report 6245669-4 (Version None)
Quarter: 2009Q2

REPORT INFORMATION
  Report Type: 
  Country: None (occurrence: None)
  Receive Date: 20090625
  Receipt Date: 20090618
  Transmission Date: 20091009
  Serious: Yes (Other)
  Sender: FDA-Public Use
  Company Number: JP-GENENTECH-284919

PATIENT
  Age: 31 Year
  Sex: Male

DRUGS (5)
  1. RITUXIMAB [Suspect]
     Indication: HAIRY CELL LEUKAEMIA
     Route: 065
  2. CYCLOPHOSPHAMIDE [Suspect]
     Indication: HAIRY CELL LEUKAEMIA
     Dosage: 120 MG/KG, UNK
     Route: 065
  3. CYCLOSPORINE [Suspect]
     Indication: GRAFT VERSUS HOST DISEASE
     Route: 065
  4. METHOTREXATE [Suspect]
     Indication: GRAFT VERSUS HOST DISEASE
     Route: 065
  5. CLADRIBINE [Concomitant]
     Indication: DRUG USE FOR UNKNOWN INDICATION
     Dosage: UNK
     Dates: end: 20020101

REACTIONS (4)
  - ACUTE GRAFT VERSUS HOST DISEASE [None]
  - BRONCHOPULMONARY ASPERGILLOSIS [None]
  - DRUG INEFFECTIVE [None]
  - PANCYTOPENIA [None]
